FAERS Safety Report 7353804-X (Version None)
Quarter: 2011Q1

REPORT INFORMATION
  Report Type: 
  Country: None (occurrence: None)
  Receive Date: 20110315
  Receipt Date: 20101027
  Transmission Date: 20110831
  Serious: No
  Sender: FDA-Public Use
  Company Number: US-BAYER-201023186BCC

PATIENT
  Sex: Female
  Weight: 59.091 kg

DRUGS (5)
  1. PREDNISONE [Concomitant]
  2. ALEVE [Suspect]
     Indication: PAIN MANAGEMENT
     Dosage: TOOK 2 EVERY 4-6 HOURS  / COUNT SIZE 80S
     Dates: start: 20101026
  3. UNCODEABLE ^UNCLASSIFIABLE^ [Concomitant]
  4. SYNTHROID [Concomitant]
  5. BROMINE [Concomitant]
     Route: 055

REACTIONS (2)
  - PAIN IN EXTREMITY [None]
  - NAUSEA [None]
